FAERS Safety Report 13479991 (Version 2)
Quarter: 2017Q2

REPORT INFORMATION
  Report Type: Spontaneous
  Country: US (occurrence: US)
  Receive Date: 20170425
  Receipt Date: 20170427
  Transmission Date: 20170830
  Serious: No
  Sender: FDA-Public Use
  Company Number: US-BIOMARINAP-US-2017-113738

PATIENT
  Age: 22 Year
  Sex: Female

DRUGS (1)
  1. KUVAN [Suspect]
     Active Substance: SAPROPTERIN DIHYDROCHLORIDE
     Indication: PRODUCT USED FOR UNKNOWN INDICATION
     Dosage: 1300 MG, QD
     Route: 048
     Dates: start: 20140401

REACTIONS (3)
  - Logorrhoea [Unknown]
  - Energy increased [Unknown]
  - Insomnia [Unknown]

NARRATIVE: CASE EVENT DATE: 20140401
